FAERS Safety Report 4305042-2 (Version None)
Quarter: 2004Q1

REPORT INFORMATION
  Report Type: 
  Country: None (occurrence: None)
  Receive Date: 20040225
  Receipt Date: 20040225
  Transmission Date: 20041129
  Serious: Yes (Hospitalization)
  Sender: FDA-Public Use
  Company Number: None

PATIENT
  Age: 52 Year
  Sex: Female
  Weight: 48.0813 kg

DRUGS (2)
  1. RIBAVIRIN [Suspect]
     Indication: HEPATITIS C
  2. INTERFERON [Suspect]

REACTIONS (9)
  - ABDOMINAL PAIN [None]
  - ASTHENIA [None]
  - BLOOD PRESSURE SYSTOLIC DECREASED [None]
  - DIZZINESS [None]
  - HAEMATEMESIS [None]
  - HYPERTENSION [None]
  - NAUSEA [None]
  - PYREXIA [None]
  - VOMITING [None]
